FAERS Safety Report 8442025-5 (Version None)
Quarter: 2012Q2

REPORT INFORMATION
  Report Type: 
  Country: None (occurrence: None)
  Receive Date: 20120615
  Receipt Date: 20120607
  Transmission Date: 20120825
  Serious: Yes (Other)
  Sender: FDA-Public Use
  Company Number: AU-JNJFOC-20120605034

PATIENT
  Sex: Female

DRUGS (5)
  1. FELODUR [Concomitant]
  2. METHOTREXATE [Concomitant]
  3. REMICADE [Suspect]
     Indication: PSORIATIC ARTHROPATHY
     Route: 042
  4. REMICADE [Suspect]
     Route: 042
     Dates: start: 20120517
  5. ATACAND [Concomitant]

REACTIONS (1)
  - DEAFNESS UNILATERAL [None]
